FAERS Safety Report 7829754-9 (Version None)
Quarter: 2011Q4

REPORT INFORMATION
  Report Type: 
  Country: None (occurrence: None)
  Receive Date: 20111020
  Receipt Date: 20111020
  Transmission Date: 20120403
  Serious: Yes (Hospitalization)
  Sender: FDA-Public Use
  Company Number: None

PATIENT
  Age: 64 Year
  Sex: Male
  Weight: 102.0593 kg

DRUGS (2)
  1. VANCOMYCIN HCL [Suspect]
     Indication: ARTHRITIS INFECTIVE
     Dosage: 2000 MG EVERY 12 HRS INJECTION
     Dates: start: 20110728, end: 20110818
  2. VANCOMYCIN HCL [Suspect]
     Indication: STAPHYLOCOCCAL INFECTION
     Dosage: 2000 MG EVERY 12 HRS INJECTION
     Dates: start: 20110728, end: 20110818

REACTIONS (4)
  - ANTIBIOTIC LEVEL ABOVE THERAPEUTIC [None]
  - HEART RATE INCREASED [None]
  - COMA [None]
  - RED MAN SYNDROME [None]
